FAERS Safety Report 4419844-5 (Version None)
Quarter: 2004Q3

REPORT INFORMATION
  Report Type: 
  Country: None (occurrence: None)
  Receive Date: 20040809
  Receipt Date: 20040312
  Transmission Date: 20050211
  Serious: No
  Sender: FDA-Public Use
  Company Number: US-GLAXOSMITHKLINE-A0502568A

PATIENT
  Sex: Female

DRUGS (2)
  1. PAROXETINE HCL [Suspect]
     Indication: BIPOLAR DISORDER
     Dosage: 3MG PER DAY
     Route: 048
  2. DIOVAN [Concomitant]

REACTIONS (1)
  - TINNITUS [None]
